FAERS Safety Report 15044610 (Version 1)
Quarter: 2018Q2

REPORT INFORMATION
  Report Type: Spontaneous
  Country: FI (occurrence: FI)
  Receive Date: 20180621
  Receipt Date: 20180621
  Transmission Date: 20180711
  Serious: Yes (Disabling)
  Sender: FDA-Public Use
  Company Number: FI-MYLANLABS-2018M1041590

PATIENT
  Age: 38 Year
  Sex: Male

DRUGS (3)
  1. LAMOTRIGINE. [Suspect]
     Active Substance: LAMOTRIGINE
     Indication: TEMPORAL LOBE EPILEPSY
     Route: 065
  2. VALPROIC ACID. [Suspect]
     Active Substance: VALPROIC ACID
     Indication: TEMPORAL LOBE EPILEPSY
     Route: 065
  3. LEVETIRACETAM. [Suspect]
     Active Substance: LEVETIRACETAM
     Indication: TEMPORAL LOBE EPILEPSY
     Route: 065

REACTIONS (9)
  - Irregular sleep phase [Unknown]
  - Fatigue [Unknown]
  - Middle insomnia [Unknown]
  - Snoring [Unknown]
  - Depressed mood [Unknown]
  - Nervousness [Unknown]
  - Anxiety [Unknown]
  - Terminal insomnia [Unknown]
  - Insomnia [Unknown]
